FAERS Safety Report 5570194-3 (Version None)
Quarter: 2007Q4

REPORT INFORMATION
  Report Type: 
  Country: None (occurrence: None)
  Receive Date: 20071217
  Receipt Date: 20071130
  Transmission Date: 20080405
  Serious: Yes (Other)
  Sender: FDA-Public Use
  Company Number: 310004N07JPN

PATIENT
  Age: 20 Year
  Sex: Male
  Weight: 89 kg

DRUGS (5)
  1. GONAL-F (FOLLITROPIN ALFA FOR INJECTION) (FOLLITOPIN ALFA) [Suspect]
     Indication: HYPOPITUITARISM
     Dosage: 75 IU, 1 IN 1 WEEKS, SUBCUTANEOUS
     Route: 058
     Dates: start: 20070806
  2. PROFASI, (CHORIONIC GONADOTROPIN FOR INJECTION, USP) (CHORIONIC GONADO [Suspect]
     Indication: HYPOPITUITARISM
     Dosage: IU, 1 IN 1 WEEKS, SUBCUTANEOUS
     Route: 058
     Dates: start: 20070806
  3. PHENYTOIN [Concomitant]
  4. HYDROCORTISONE [Concomitant]
  5. THYROID TAB [Concomitant]

REACTIONS (2)
  - BLOOD HUMAN CHORIONIC GONADOTROPIN INCREASED [None]
  - NEOPLASM RECURRENCE [None]
